FAERS Safety Report 18372692 (Version 1)
Quarter: 2020Q4

REPORT INFORMATION
  Report Type: Spontaneous
  Country: US (occurrence: US)
  Receive Date: 20201012
  Receipt Date: 20201012
  Transmission Date: 20210114
  Serious: Yes (Hospitalization)
  Sender: FDA-Public Use
  Company Number: US-PFIZER INC-2020387507

PATIENT
  Age: 84 Year
  Sex: Female
  Weight: 99.79 kg

DRUGS (3)
  1. XALKORI [Suspect]
     Active Substance: CRIZOTINIB
     Indication: SMALL CELL LUNG CANCER METASTATIC
     Dosage: 250 MG, 2X/DAY (250 MG ONE CAPSULE TWICE A DAY BY MOUTH); (APPROXIMATELY ~730AM-8AM THIS MORNING; SE
     Route: 048
  2. XGEVA [Concomitant]
     Active Substance: DENOSUMAB
     Dosage: UNK; (ONCE A MONTH SHE GETS A SHOT OF XGEVA)
  3. VIACTIV [CALCIUM] [Concomitant]
     Active Substance: CALCIUM
     Dosage: UNK, 2X/DAY; (CHOCOLATE FLAVORED THING TWICE A DAY WITH HER XALKORI)

REACTIONS (11)
  - Lymphoedema [Unknown]
  - Arthralgia [Unknown]
  - Pain in extremity [Unknown]
  - Inappropriate schedule of product administration [Unknown]
  - Wrong product administered [Unknown]
  - Dizziness [Recovering/Resolving]
  - Off label use [Unknown]
  - Fatigue [Unknown]
  - Product use in unapproved indication [Unknown]
  - Back disorder [Unknown]
  - Bradycardia [Recovering/Resolving]

NARRATIVE: CASE EVENT DATE: 202008
